FAERS Safety Report 22938142 (Version 2)
Quarter: 2024Q1

REPORT INFORMATION
  Report Type: Other
  Country: US (occurrence: None)
  Receive Date: 20230913
  Receipt Date: 20240325
  Transmission Date: 20240410
  Serious: Yes (Other)
  Sender: FDA-Public Use
  Company Number: US-ROCHE-3413279

PATIENT
  Age: 53 Year
  Sex: Female
  Weight: 63.56 kg

DRUGS (5)
  1. OCREVUS [Suspect]
     Active Substance: OCRELIZUMAB
     Indication: Relapsing-remitting multiple sclerosis
     Dosage: DATE OF TREATMENT: 29/SEP/2021, LAST DOSE ON 12/SEP/2023
     Route: 042
     Dates: start: 201701
  2. ATENOLOL [Concomitant]
     Active Substance: ATENOLOL
     Dosage: 25 MG ORAL TABLET ONCE A DAY
     Dates: start: 202206
  3. MAGNESIUM [Concomitant]
     Active Substance: MAGNESIUM
  4. RIBOFLAVIN [Concomitant]
     Active Substance: RIBOFLAVIN
  5. COENZYME Q10 [Concomitant]
     Active Substance: DIETARY SUPPLEMENT\UBIDECARENONE

REACTIONS (10)
  - Hemiparesis [Not Recovered/Not Resolved]
  - Schwannoma [Recovered/Resolved]
  - Pneumonia [Recovered/Resolved]
  - Ear pain [Recovered/Resolved]
  - Balance disorder [Not Recovered/Not Resolved]
  - Fall [Not Recovered/Not Resolved]
  - Hypertension [Not Recovered/Not Resolved]
  - Colitis [Recovering/Resolving]
  - Anogenital lichen planus [Not Recovered/Not Resolved]
  - Migraine [Recovered/Resolved]

NARRATIVE: CASE EVENT DATE: 20210101
